FAERS Safety Report 7112551-X (Version None)
Quarter: 2010Q4

REPORT INFORMATION
  Report Type: 
  Country: None (occurrence: None)
  Receive Date: 20101119
  Receipt Date: 20100505
  Transmission Date: 20110411
  Serious: Yes (Other)
  Sender: FDA-Public Use
  Company Number: US-TEVA-233895USA

PATIENT

DRUGS (7)
  1. ALBUTEROL SULFATE AUTOHALER [Suspect]
     Indication: PRODUCT USED FOR UNKNOWN INDICATION
     Route: 055
  2. ATORVASTATIN CALCIUM [Suspect]
  3. TIOTROPIUM BROMIDE [Suspect]
  4. FUROSEMIDE [Suspect]
  5. SERETIDE                           /01420901/ [Suspect]
     Dosage: 500/50
  6. BENAZEPRIL HYDROCHLORIDE [Suspect]
  7. METOPROLOL SUCCINATE [Suspect]

REACTIONS (1)
  - MYALGIA [None]
